FAERS Safety Report 5276120-9 (Version None)
Quarter: 2007Q1

REPORT INFORMATION
  Report Type: 
  Country: None (occurrence: None)
  Receive Date: 20070326
  Receipt Date: 20060713
  Transmission Date: 20070707
  Serious: Yes (Hospitalization)
  Sender: FDA-Public Use
  Company Number: US-JNJFOC-20060503555

PATIENT
  Sex: Male
  Weight: 79.38 kg

DRUGS (10)
  1. TMC114 [Suspect]
     Route: 048
  2. TMC114 [Suspect]
     Route: 048
  3. TMC114 [Suspect]
     Indication: HIV INFECTION
     Route: 048
  4. NORVIR [Suspect]
     Indication: HIV INFECTION
     Route: 048
  5. FUZEON [Concomitant]
     Indication: HIV INFECTION
     Route: 058
  6. EPZICOM [Concomitant]
     Indication: HIV INFECTION
     Route: 048
  7. VIREAD [Concomitant]
     Indication: HIV INFECTION
     Route: 048
  8. BACTRIM DS [Concomitant]
     Indication: PNEUMOCYSTIS JIROVECI PNEUMONIA
     Dosage: STARTED PRE-TRIAL
     Route: 048
  9. ZITHROMAX [Concomitant]
     Indication: MYCOBACTERIUM AVIUM COMPLEX INFECTION
     Dosage: STARTED PRE-TRIAL
     Route: 048
  10. DIFLUCAN [Concomitant]
     Indication: MENINGITIS CRYPTOCOCCAL
     Dosage: STARTED PRE-TRIAL
     Route: 048

REACTIONS (4)
  - DIARRHOEA INFECTIOUS [None]
  - MENTAL STATUS CHANGES [None]
  - PYREXIA [None]
  - SINUSITIS BACTERIAL [None]
